FAERS Safety Report 22769262 (Version 5)
Quarter: 2024Q1

REPORT INFORMATION
  Report Type: Report from Study
  Country: US (occurrence: US)
  Receive Date: 20230731
  Receipt Date: 20240319
  Transmission Date: 20240409
  Serious: Yes (Hospitalization, Other)
  Sender: FDA-Public Use
  Company Number: US-ABBVIE-5347204

PATIENT
  Age: 55 Year
  Sex: Female

DRUGS (4)
  1. HUMIRA [Suspect]
     Active Substance: ADALIMUMAB
     Indication: Product used for unknown indication
     Route: 058
     Dates: start: 20210817
  2. HUMIRA [Suspect]
     Active Substance: ADALIMUMAB
     Route: 058
  3. HUMIRA [Suspect]
     Active Substance: ADALIMUMAB
     Dosage: LAST ADMIN DATE: 2022
     Route: 058
     Dates: start: 20220727
  4. HUMIRA [Suspect]
     Active Substance: ADALIMUMAB
     Route: 058
     Dates: start: 20221012

REACTIONS (20)
  - Seizure [Unknown]
  - COVID-19 [Unknown]
  - Wound haemorrhage [Unknown]
  - Gait disturbance [Unknown]
  - Adverse drug reaction [Unknown]
  - Back pain [Not Recovered/Not Resolved]
  - Post-traumatic stress disorder [Unknown]
  - Condition aggravated [Unknown]
  - Pain [Unknown]
  - Infection [Unknown]
  - Memory impairment [Unknown]
  - Surgery [Unknown]
  - Musculoskeletal stiffness [Unknown]
  - Arthralgia [Not Recovered/Not Resolved]
  - Injury [Unknown]
  - COVID-19 [Recovered/Resolved]
  - Mental impairment [Unknown]
  - Weight decreased [Unknown]
  - Nasopharyngitis [Recovered/Resolved]
  - Seasonal affective disorder [Recovering/Resolving]

NARRATIVE: CASE EVENT DATE: 20210817
